FAERS Safety Report 18160819 (Version 1)
Quarter: 2020Q3

REPORT INFORMATION
  Report Type: Spontaneous
  Country: US (occurrence: US)
  Receive Date: 20200818
  Receipt Date: 20200818
  Transmission Date: 20201103
  Serious: No
  Sender: FDA-Public Use
  Company Number: US-COLGATE PALMOLIVE COMPANY-20190902420

PATIENT
  Sex: Female

DRUGS (1)
  1. COLGATE TOTAL ADVANCED WHITENING [Suspect]
     Active Substance: SODIUM FLUORIDE\TRICLOSAN
     Dosage: UNKNOWN

REACTIONS (6)
  - Product taste abnormal [Unknown]
  - Headache [Unknown]
  - Lip swelling [Unknown]
  - Malaise [Unknown]
  - Hypersensitivity [Unknown]
  - Erythema [Unknown]
